FAERS Safety Report 20427772 (Version 1)
Quarter: 2022Q1

REPORT INFORMATION
  Report Type: Spontaneous
  Country: RU (occurrence: RU)
  Receive Date: 20220204
  Receipt Date: 20220204
  Transmission Date: 20220423
  Serious: Yes (Hospitalization)
  Sender: FDA-Public Use
  Company Number: RU-JNJFOC-20220146239

PATIENT
  Age: 40 Year
  Sex: Male
  Weight: 64.6 kg

DRUGS (9)
  1. UPTRAVI [Suspect]
     Active Substance: SELEXIPAG
     Indication: Pulmonary arterial hypertension
     Route: 048
     Dates: start: 20210928, end: 20220118
  2. TORSEMIDE [Concomitant]
     Active Substance: TORSEMIDE
  3. EPLERENONE [Concomitant]
     Active Substance: EPLERENONE
  4. ALLOPURINOL [Concomitant]
     Active Substance: ALLOPURINOL
  5. URSODIOL [Concomitant]
     Active Substance: URSODIOL
  6. SILDENAFIL [Concomitant]
     Active Substance: SILDENAFIL
  7. MACITENTAN [Concomitant]
     Active Substance: MACITENTAN
  8. APIXABAN [Concomitant]
     Active Substance: APIXABAN
  9. PANTOPRAZOLE [Concomitant]
     Active Substance: PANTOPRAZOLE

REACTIONS (3)
  - Cardiac failure [Recovering/Resolving]
  - Atrial fibrillation [Recovering/Resolving]
  - Pulmonary arterial hypertension [Recovering/Resolving]

NARRATIVE: CASE EVENT DATE: 20220113
